FAERS Safety Report 7988323-0 (Version None)
Quarter: 2011Q4

REPORT INFORMATION
  Report Type: 
  Country: None (occurrence: None)
  Receive Date: 20111216
  Receipt Date: 20111205
  Transmission Date: 20120403
  Serious: Yes (Hospitalization, Other)
  Sender: FDA-Public Use
  Company Number: JP-COVIDIEN/TYCO HEALTHCARE/MALLINCKRODT-T201102422

PATIENT
  Sex: Male
  Weight: 41 kg

DRUGS (25)
  1. METHADONE HCL [Suspect]
     Indication: CANCER PAIN
     Dosage: 20 MG, BID
     Route: 048
     Dates: start: 20110222
  2. METHADONE HCL [Suspect]
     Dosage: 25 MG, BID
     Dates: start: 20110401
  3. PRIMPERAN TAB [Concomitant]
     Dosage: 5 MG, TID
     Dates: start: 20110213
  4. ACUATIM [Concomitant]
     Dosage: UNK
     Dates: start: 20110526
  5. NEUROVITAN                         /00280501/ [Concomitant]
     Dosage: 1 TABLET, TID
     Dates: start: 20110623
  6. ALLEGRA [Concomitant]
     Indication: PRURITUS
     Dosage: 60 MG, PRN
     Dates: start: 20110822
  7. ANTEBATE [Concomitant]
     Dosage: UNK
     Dates: start: 20110822
  8. METHADONE HCL [Suspect]
     Dosage: 10 MG, BID
     Dates: start: 20110214
  9. HYPEN                              /00613801/ [Concomitant]
     Dosage: 200 MG, BID
  10. ZOMETA [Concomitant]
     Dosage: 4 MG, ONCE/FOUR WEEKS
     Route: 042
  11. TARCEVA [Concomitant]
     Dosage: 150 MG, QD
     Dates: start: 20110427, end: 20111107
  12. LENDORMIN [Concomitant]
     Indication: INSOMNIA
     Dosage: 0.25 MG/TIME
     Dates: start: 20110509
  13. DIART [Concomitant]
     Dosage: 30 MG, QD
     Dates: start: 20110708
  14. METHADONE HCL [Suspect]
     Dosage: 25 MG, BID
     Dates: start: 20111122
  15. AZUNOL                             /00317302/ [Concomitant]
     Dosage: UNK
     Route: 048
  16. METHADONE HCL [Suspect]
     Dosage: 15 MG, BID
     Dates: start: 20110218
  17. METHADONE HCL [Suspect]
     Dosage: 5 MG, TID
     Dates: start: 20110210
  18. MUCOSTA [Concomitant]
     Dosage: 100 MG, TID
  19. MAGMITT [Concomitant]
     Dosage: 330-660 MG, TID
     Dates: start: 20110310
  20. METHADONE HCL [Suspect]
     Dosage: 20 MG, BID
     Dates: start: 20110527
  21. SODIUM CHLORIDE [Concomitant]
     Dosage: 100 ML, ONCE/FOUR WEEKS
  22. LANSOPRAZOLE [Concomitant]
     Dosage: 15 MG, QD
     Dates: start: 20110213
  23. OXINORM                            /00045603/ [Concomitant]
     Indication: PAIN
     Dosage: 10-20 MG, PRN
     Dates: start: 20110402
  24. HIRUDOID                           /00723701/ [Concomitant]
     Dosage: UNK
     Dates: start: 20110502
  25. TERRA CORTRIL                      /00326701/ [Concomitant]
     Dosage: UNK
     Dates: start: 20110526

REACTIONS (4)
  - TREMOR [None]
  - CARCINOEMBRYONIC ANTIGEN INCREASED [None]
  - OVERDOSE [None]
  - METASTATIC PAIN [None]
